FAERS Safety Report 20510070 (Version 1)
Quarter: 2022Q1

REPORT INFORMATION
  Report Type: Spontaneous
  Country: US (occurrence: US)
  Receive Date: 20220224
  Receipt Date: 20220224
  Transmission Date: 20220423
  Serious: No
  Sender: FDA-Public Use
  Company Number: US-drreddys-SPO/USA/22/0147063

PATIENT
  Age: 74 Year
  Sex: Female

DRUGS (6)
  1. LORAZEPAM [Suspect]
     Active Substance: LORAZEPAM
     Indication: Generalised anxiety disorder
  2. LORAZEPAM [Suspect]
     Active Substance: LORAZEPAM
     Dosage: TAPERED
  3. ZOLPIDEM [Suspect]
     Active Substance: ZOLPIDEM TARTRATE
     Indication: Generalised anxiety disorder
  4. ZOLPIDEM [Suspect]
     Active Substance: ZOLPIDEM TARTRATE
     Dosage: TAPERED
  5. DIAZEPAM [Suspect]
     Active Substance: DIAZEPAM
     Indication: Generalised anxiety disorder
     Dosage: TAPERED
  6. DIAZEPAM [Suspect]
     Active Substance: DIAZEPAM

REACTIONS (5)
  - Fear [Recovering/Resolving]
  - Drug withdrawal syndrome [Recovering/Resolving]
  - Insomnia [Recovering/Resolving]
  - Psychiatric symptom [Recovering/Resolving]
  - Pain [Recovering/Resolving]
